FAERS Safety Report 12896609 (Version 2)
Quarter: 2017Q1

REPORT INFORMATION
  Report Type: Spontaneous
  Country: US (occurrence: US)
  Receive Date: 20161031
  Receipt Date: 20170316
  Transmission Date: 20170428
  Serious: Yes (Other)
  Sender: FDA-Public Use
  Company Number: US-TEVA-707038USA

PATIENT
  Age: 46 Year
  Sex: Female
  Weight: 49.94 kg

DRUGS (7)
  1. NASACORT [Concomitant]
     Active Substance: TRIAMCINOLONE ACETONIDE
     Indication: HYPERSENSITIVITY
  2. LAMICTAL [Concomitant]
     Active Substance: LAMOTRIGINE
     Indication: BIPOLAR DISORDER
  3. NORVASC [Concomitant]
     Active Substance: AMLODIPINE BESYLATE
     Indication: HYPERTENSION
  4. ESTRACE [Concomitant]
     Active Substance: ESTRADIOL
     Indication: HORMONE THERAPY
  5. ARMOUR THYROID [Concomitant]
     Active Substance: THYROID, PORCINE
     Indication: HYPOTHYROIDISM
     Route: 065
  6. NUVIGIL [Suspect]
     Active Substance: ARMODAFINIL
     Indication: BIPOLAR DISORDER
     Route: 065
     Dates: start: 2013, end: 20161007
  7. XANAX XR [Concomitant]
     Active Substance: ALPRAZOLAM
     Indication: BIPOLAR DISORDER

REACTIONS (9)
  - Drug dose omission [Unknown]
  - Fatigue [Unknown]
  - Product use issue [Unknown]
  - Pulmonary mass [Unknown]
  - Withdrawal syndrome [Unknown]
  - Crying [Unknown]
  - Off label use [Unknown]
  - Depression [Unknown]
  - Sinus operation [Unknown]

NARRATIVE: CASE EVENT DATE: 201603
